FAERS Safety Report 5465334-0 (Version None)
Quarter: 2007Q3

REPORT INFORMATION
  Report Type: 
  Country: None (occurrence: None)
  Receive Date: 20070920
  Receipt Date: 20070920
  Transmission Date: 20080115
  Serious: Yes (Hospitalization)
  Sender: FDA-Public Use
  Company Number: None

PATIENT
  Sex: Male
  Weight: 89.4 kg

DRUGS (1)
  1. TEMOZOLOMIDE [Suspect]
     Dosage: 6720 MG

REACTIONS (2)
  - CATHETER SITE INFECTION [None]
  - GASTROINTESTINAL INFECTION [None]
